FAERS Safety Report 9387175 (Version 1)
Quarter: 2013Q3

REPORT INFORMATION
  Report Type: Spontaneous
  Country: US (occurrence: US)
  Receive Date: 20130708
  Receipt Date: 20130708
  Transmission Date: 20140515
  Serious: Yes (Other)
  Sender: FDA-Public Use
  Company Number: US-MYLANLABS-2013S1014339

PATIENT
  Age: 59 Year
  Sex: Male
  Weight: 130 kg

DRUGS (7)
  1. METHOTREXATE [Suspect]
     Indication: PRECURSOR T-LYMPHOBLASTIC LYMPHOMA/LEUKAEMIA
     Dosage: HIGH-DOSE; 2G/M2; CONTINUOUS OVER 24H
     Route: 050
  2. SODIUM BICARBONATE [Suspect]
     Dosage: 150 ML/H
     Route: 050
  3. CYCLOPHOSPHAMIDE [Concomitant]
     Indication: PRECURSOR T-LYMPHOBLASTIC LYMPHOMA/LEUKAEMIA
     Route: 065
  4. VINCRISTINE [Concomitant]
     Indication: PRECURSOR T-LYMPHOBLASTIC LYMPHOMA/LEUKAEMIA
     Route: 065
  5. DOXORUBICIN [Concomitant]
     Indication: PRECURSOR T-LYMPHOBLASTIC LYMPHOMA/LEUKAEMIA
     Route: 065
  6. DEXAMETHASONE [Concomitant]
     Indication: PRECURSOR T-LYMPHOBLASTIC LYMPHOMA/LEUKAEMIA
     Route: 065
  7. ALLOPURINOL [Concomitant]
     Dosage: 300MG DAILY
     Route: 065

REACTIONS (2)
  - Renal failure acute [Recovering/Resolving]
  - Metabolic alkalosis [Unknown]
